FAERS Safety Report 9219561 (Version 1)
Quarter: 2013Q2

REPORT INFORMATION
  Report Type: Spontaneous
  Country: US (occurrence: None)
  Receive Date: 20130408
  Receipt Date: 20130408
  Transmission Date: 20140414
  Serious: Yes (Other)
  Sender: FDA-Public Use
  Company Number: None

PATIENT
  Age: 7 Year
  Sex: Female
  Weight: 29.48 kg

DRUGS (1)
  1. DEXTROAMP-AMPHET. ER [Suspect]
     Indication: ATTENTION DEFICIT/HYPERACTIVITY DISORDER
     Dosage: APPROX. 2 MONTHS

REACTIONS (5)
  - Headache [None]
  - Chest pain [None]
  - Attention deficit/hyperactivity disorder [None]
  - Condition aggravated [None]
  - Product substitution issue [None]
